FAERS Safety Report 12596932 (Version 1)
Quarter: 2016Q3

REPORT INFORMATION
  Report Type: Report from Study
  Country: BR (occurrence: BR)
  Receive Date: 20160727
  Receipt Date: 20160727
  Transmission Date: 20161109
  Serious: Yes (Hospitalization)
  Sender: FDA-Public Use
  Company Number: PHHY2016BR101474

PATIENT
  Age: 94 Year
  Sex: Female
  Weight: 51 kg

DRUGS (1)
  1. EXELON PATCH [Suspect]
     Active Substance: RIVASTIGMINE
     Indication: PRODUCT USED FOR UNKNOWN INDICATION
     Dosage: PATCH (5 CM2)
     Route: 062
     Dates: end: 20160526

REACTIONS (11)
  - Malaise [Unknown]
  - Confusional state [Unknown]
  - Weight decreased [Unknown]
  - Asthma [Unknown]
  - Inappropriate schedule of drug administration [Unknown]
  - Malnutrition [Unknown]
  - Memory impairment [Recovering/Resolving]
  - Disorientation [Recovering/Resolving]
  - Dehydration [Unknown]
  - Head discomfort [Unknown]
  - Urinary tract infection [Unknown]

NARRATIVE: CASE EVENT DATE: 201605
